FAERS Safety Report 5723495-X (Version None)
Quarter: 2008Q2

REPORT INFORMATION
  Report Type: 
  Country: None (occurrence: None)
  Receive Date: 20080425
  Receipt Date: 20070928
  Transmission Date: 20081010
  Serious: Yes (Other)
  Sender: FDA-Public Use
  Company Number: M7002-000625-SPO-US

PATIENT
  Age: 78 Year
  Sex: Male

DRUGS (1)
  1. ONTAK [Suspect]
     Indication: MYCOSIS FUNGOIDES
     Dosage: INTRAVENOUS INFUSION
     Dates: start: 20061201, end: 20070101

REACTIONS (1)
  - BLINDNESS [None]
